FAERS Safety Report 23662683 (Version 1)
Quarter: 2024Q1

REPORT INFORMATION
  Report Type: Spontaneous
  Country: CN (occurrence: CN)
  Receive Date: 20240322
  Receipt Date: 20240322
  Transmission Date: 20240409
  Serious: Yes (Hospitalization)
  Sender: FDA-Public Use
  Company Number: CN-Air Products and Chemicals, Inc. -2154682

PATIENT
  Age: 62 Year
  Sex: Female

DRUGS (1)
  1. OXYGEN [Suspect]
     Active Substance: OXYGEN

REACTIONS (3)
  - Pleural effusion [Recovering/Resolving]
  - Atelectasis [Recovering/Resolving]
  - Hypoxia [Recovering/Resolving]
